FAERS Safety Report 9476264 (Version 5)
Quarter: 2013Q4

REPORT INFORMATION
  Report Type: Spontaneous
  Country: JP (occurrence: JP)
  Receive Date: 20130826
  Receipt Date: 20131016
  Transmission Date: 20140711
  Serious: Yes (Death, Life-Threatening, Other)
  Sender: FDA-Public Use
  Company Number: JP-BAYER-2013-079689

PATIENT
  Age: 50 Year
  Sex: Female
  Weight: 60 kg

DRUGS (13)
  1. STIVARGA [Suspect]
     Indication: COLON CANCER METASTATIC
     Dosage: 160 MG, QD
     Route: 048
     Dates: start: 20130607, end: 20130626
  2. STIVARGA [Suspect]
     Indication: COLON CANCER METASTATIC
     Dosage: 80 MG, QD
     Route: 048
     Dates: start: 20130703, end: 20130723
  3. STIVARGA [Suspect]
     Indication: COLON CANCER METASTATIC
     Dosage: 120 MG, QD
     Route: 048
     Dates: start: 20130801, end: 20130806
  4. KRESTIN [Suspect]
     Indication: COLON CANCER
     Dosage: 1 G, TID
  5. MEROPEN [Suspect]
     Dosage: UNK
     Dates: start: 20130803, end: 20130813
  6. LOXONIN [Concomitant]
     Dosage: 60 MG, TID
     Route: 048
  7. OXYCONTIN [Concomitant]
     Dosage: 20 MG, BID
  8. NU-LOTAN [Concomitant]
     Dosage: 50 MG, OM
     Route: 048
  9. OXINORM [Concomitant]
     Dosage: 5 MG, PRN
     Route: 048
  10. NEXIUM [Concomitant]
     Dosage: 20 MG, OM
     Route: 048
  11. BENET [Concomitant]
     Dosage: 17.5 MG, QD
     Route: 048
  12. URSO [Concomitant]
     Dosage: 200 MG, TID
     Route: 048
  13. ANTEBATE [Concomitant]
     Route: 061

REACTIONS (4)
  - Interstitial lung disease [Fatal]
  - Hepatic failure [Not Recovered/Not Resolved]
  - Palmar-plantar erythrodysaesthesia syndrome [Recovering/Resolving]
  - Rash [Recovering/Resolving]
